FAERS Safety Report 22387596 (Version 2)
Quarter: 2023Q2

REPORT INFORMATION
  Report Type: Spontaneous
  Country: UA (occurrence: None)
  Receive Date: 20230531
  Receipt Date: 20230622
  Transmission Date: 20230722
  Serious: Yes (Other)
  Sender: FDA-Public Use
  Company Number: UA-ROCHE-3356159

PATIENT
  Age: 37 Year
  Sex: Male

DRUGS (5)
  1. GAZYVA [Suspect]
     Active Substance: OBINUTUZUMAB
     Indication: Follicular lymphoma
     Dosage: LAST DOSE WAS ON 22/JUN/2021.?1000 MG PER 250 ML OF SALINE IN A [P/V] BAG BY IV INFUSOMAT WITH SPEED
     Route: 042
     Dates: start: 20201105
  2. PREDNISONE [Suspect]
     Active Substance: PREDNISONE
     Indication: Follicular lymphoma
     Route: 065
     Dates: start: 20201105
  3. CYCLOPHOSPHAMIDE [Suspect]
     Active Substance: CYCLOPHOSPHAMIDE
     Indication: Follicular lymphoma
     Route: 065
     Dates: start: 20201105
  4. DOXORUBICIN [Suspect]
     Active Substance: DOXORUBICIN
     Indication: Follicular lymphoma
     Route: 065
     Dates: start: 20201105
  5. VINCRISTINE [Suspect]
     Active Substance: VINCRISTINE
     Indication: Follicular lymphoma
     Route: 065
     Dates: start: 20201105

REACTIONS (10)
  - Ascites [Unknown]
  - Abdominal discomfort [Unknown]
  - Hepatosplenomegaly [Unknown]
  - Renal cyst [Unknown]
  - Asthenia [Unknown]
  - Fatigue [Unknown]
  - Anxiety [Unknown]
  - Hepatic cyst [Unknown]
  - Haemangioma of liver [Unknown]
  - Lymphadenopathy [Unknown]
